FAERS Safety Report 15173181 (Version 1)
Quarter: 2018Q3

REPORT INFORMATION
  Report Type: Spontaneous
  Country: US (occurrence: US)
  Receive Date: 20180622
  Receipt Date: 20180622
  Transmission Date: 20181010
  Serious: Yes (Life-Threatening)
  Sender: FDA-Public Use
  Company Number: None

PATIENT
  Age: 87 Year
  Sex: Male
  Weight: 75 kg

DRUGS (2)
  1. METOPROLOL. [Suspect]
     Active Substance: METOPROLOL
     Indication: HYPERTENSION
     Route: 048
     Dates: start: 20180430, end: 20180502
  2. METOPROLOL. [Suspect]
     Active Substance: METOPROLOL
     Indication: URINARY TRACT INFECTION
     Route: 042
     Dates: start: 20180430, end: 20180502

REACTIONS (4)
  - Atrioventricular block second degree [None]
  - Atrioventricular block complete [None]
  - Palpitations [None]
  - Bradycardia [None]

NARRATIVE: CASE EVENT DATE: 20180502
